FAERS Safety Report 8562587-7 (Version None)
Quarter: 2012Q3

REPORT INFORMATION
  Report Type: 
  Country: None (occurrence: None)
  Receive Date: 20120802
  Receipt Date: 20120711
  Transmission Date: 20120928
  Serious: No
  Sender: FDA-Public Use
  Company Number: US-AMGEN-USASP2012042954

PATIENT
  Age: 41 Year
  Sex: Female

DRUGS (2)
  1. ENBREL [Suspect]
     Indication: PSORIATIC ARTHROPATHY
     Dosage: 50 MG, QWK
     Dates: start: 20090331
  2. SIMPONI [Concomitant]
     Dosage: UNK

REACTIONS (3)
  - INJECTION SITE DISCOMFORT [None]
  - INJECTION SITE PAIN [None]
  - PSORIATIC ARTHROPATHY [None]
